FAERS Safety Report 7784612-3 (Version None)
Quarter: 2011Q3

REPORT INFORMATION
  Report Type: 
  Country: None (occurrence: None)
  Receive Date: 20110928
  Receipt Date: 20110916
  Transmission Date: 20111222
  Serious: Yes (Other)
  Sender: FDA-Public Use
  Company Number: JP-SANOFI-AVENTIS-2011SA062107

PATIENT
  Age: 61 Year
  Sex: Male
  Weight: 75.3 kg

DRUGS (16)
  1. INSULIN GLULISINE [Suspect]
     Route: 065
     Dates: start: 20110107, end: 20110217
  2. HUMALOG [Concomitant]
     Dosage: 5 UNITS IN THE MORNING, 7 UNITS IN THE DAYTIME, 5 UNITS IN THE EVENING.
     Dates: end: 20101126
  3. VALSARTAN [Concomitant]
     Route: 048
  4. ITAVASTATIN [Concomitant]
     Route: 048
  5. CARVEDILOL [Concomitant]
     Route: 048
  6. MONILAC [Concomitant]
     Route: 048
  7. LAXATIVES [Concomitant]
     Route: 048
  8. INSULIN DETEMIR [Concomitant]
     Dates: end: 20101126
  9. INSULIN GLULISINE [Suspect]
     Route: 065
     Dates: start: 20101127, end: 20101209
  10. INSULIN GLULISINE [Suspect]
     Route: 065
     Dates: start: 20110624
  11. AMLODIPINE BESYLATE [Concomitant]
     Route: 048
  12. LASIX [Concomitant]
     Route: 048
  13. INSULIN GLULISINE [Suspect]
     Route: 065
     Dates: start: 20110225, end: 20110623
  14. INSULIN GLULISINE [Suspect]
     Route: 065
     Dates: start: 20101210, end: 20110106
  15. INSULIN GLULISINE [Suspect]
     Route: 065
     Dates: start: 20110218, end: 20110224
  16. LANSOPRAZOLE [Concomitant]
     Route: 048

REACTIONS (2)
  - RENAL FAILURE [None]
  - DECREASED APPETITE [None]
